FAERS Safety Report 5033459-X (Version None)
Quarter: 2006Q2

REPORT INFORMATION
  Report Type: 
  Country: None (occurrence: None)
  Receive Date: 20060623
  Receipt Date: 20060614
  Transmission Date: 20061013
  Serious: Yes (Other)
  Sender: FDA-Public Use
  Company Number: US-JNJFOC-20060603411

PATIENT
  Sex: Female
  Weight: 70.76 kg

DRUGS (11)
  1. REMICADE [Suspect]
     Indication: RHEUMATOID ARTHRITIS
     Route: 042
  2. PREDNISONE [Concomitant]
     Indication: RHEUMATOID ARTHRITIS
  3. METHOTREXATE [Concomitant]
     Indication: RHEUMATOID ARTHRITIS
  4. DIGOXIN [Concomitant]
     Indication: HEART RATE IRREGULAR
  5. PLAQUENIL [Concomitant]
     Indication: RHEUMATOID ARTHRITIS
  6. VITAMINS [Concomitant]
  7. GLUCOTROL [Concomitant]
     Indication: DIABETES MELLITUS
  8. LEVOSTATIN [Concomitant]
     Indication: BLOOD CHOLESTEROL
  9. INDERAL [Concomitant]
     Indication: CARDIAC DISORDER
  10. NIZATIDINE [Concomitant]
     Indication: GASTRIC DISORDER
  11. ECOTRIN [Concomitant]

REACTIONS (1)
  - BASAL CELL CARCINOMA [None]
